FAERS Safety Report 18710903 (Version 6)
Quarter: 2021Q2

REPORT INFORMATION
  Report Type: Report from Study
  Country: US (occurrence: US)
  Receive Date: 20210107
  Receipt Date: 20210525
  Transmission Date: 20210717
  Serious: Yes (Other)
  Sender: FDA-Public Use
  Company Number: NVSC2021US001798

PATIENT
  Age: 51 Year
  Sex: Female

DRUGS (4)
  1. OTEZLA [Concomitant]
     Active Substance: APREMILAST
     Indication: PRODUCT USED FOR UNKNOWN INDICATION
     Dosage: 300 MG, BID
     Route: 065
  2. COSENTYX [Suspect]
     Active Substance: SECUKINUMAB
     Dosage: 300 MG (Q WEEK FOR FIVE WEEKS AND THE Q FOUR WEEKS)
     Route: 058
     Dates: start: 20201218
  3. PREDNISONE. [Concomitant]
     Active Substance: PREDNISONE
     Indication: PRODUCT USED FOR UNKNOWN INDICATION
     Dosage: UNK
     Route: 065
  4. COSENTYX [Suspect]
     Active Substance: SECUKINUMAB
     Indication: PSORIASIS
     Dosage: 300 MG, QW (FOR FIVE WEEKS AND THEN EVERY 4 WEEKS, BENEATH THE SKIN USUALLY VIA INJECTION)
     Route: 058
     Dates: start: 20201129

REACTIONS (7)
  - Psoriasis [Unknown]
  - Product dose omission issue [Unknown]
  - Psoriatic arthropathy [Unknown]
  - Acne [Unknown]
  - Skin exfoliation [Unknown]
  - Blister [Unknown]
  - Injection site pain [Unknown]

NARRATIVE: CASE EVENT DATE: 20201226
